FAERS Safety Report 8305773 (Version 7)
Quarter: 2013Q2

REPORT INFORMATION
  Report Type: Report from Study
  Country: JP (occurrence: JP)
  Receive Date: 20111221
  Receipt Date: 20130412
  Transmission Date: 20140414
  Serious: Yes (Death, Hospitalization)
  Sender: FDA-Public Use
  Company Number: JP-GLAXOSMITHKLINE-B0769995A

PATIENT
  Age: 88 Year
  Sex: Female
  Weight: 48 kg

DRUGS (25)
  1. REVOLADE [Suspect]
     Indication: IDIOPATHIC THROMBOCYTOPENIC PURPURA
     Route: 048
     Dates: start: 20110519, end: 20111113
  2. REVOLADE [Suspect]
     Indication: IDIOPATHIC THROMBOCYTOPENIC PURPURA
     Dosage: 12.5MG THREE TIMES PER WEEK
     Route: 048
     Dates: start: 20111114, end: 20120116
  3. REVOLADE [Suspect]
     Indication: IDIOPATHIC THROMBOCYTOPENIC PURPURA
     Route: 048
     Dates: start: 20120625, end: 20120811
  4. WARFARIN [Suspect]
     Indication: IDIOPATHIC THROMBOCYTOPENIC PURPURA
     Route: 048
     Dates: start: 20120509, end: 20120811
  5. DANAZOL [Suspect]
     Indication: IDIOPATHIC THROMBOCYTOPENIC PURPURA
     Route: 048
  6. PREDNISOLONE [Concomitant]
     Indication: IDIOPATHIC THROMBOCYTOPENIC PURPURA
     Route: 048
  7. PREDNISOLONE [Concomitant]
     Indication: IDIOPATHIC THROMBOCYTOPENIC PURPURA
     Route: 048
     Dates: start: 20120523, end: 20120620
  8. PREDNISOLONE [Concomitant]
     Indication: IDIOPATHIC THROMBOCYTOPENIC PURPURA
     Route: 048
     Dates: start: 20120621, end: 20120811
  9. MUCOSOLVAN [Concomitant]
     Route: 048
     Dates: end: 20120811
  10. MUCODYNE [Concomitant]
     Route: 048
  11. MUCODYNE [Concomitant]
     Route: 048
     Dates: end: 20120811
  12. METILDIGOXIN [Concomitant]
     Route: 048
  13. METILDIGOXIN [Concomitant]
     Route: 048
     Dates: start: 20120710, end: 20120811
  14. ALDACTONE A [Concomitant]
     Route: 048
     Dates: end: 20120811
  15. DIOSMIN [Concomitant]
     Route: 048
     Dates: end: 20120811
  16. FUROSEMIDE [Concomitant]
     Route: 048
     Dates: end: 20120811
  17. LENDORMIN [Concomitant]
     Indication: PROPHYLAXIS
     Route: 048
     Dates: start: 20111129, end: 20120709
  18. LENDORMIN [Concomitant]
     Indication: PROPHYLAXIS
     Route: 048
     Dates: start: 20120710, end: 20120811
  19. TAKEPRON [Concomitant]
     Indication: PROPHYLAXIS
     Route: 048
     Dates: end: 20120709
  20. CHINESE MEDICINE [Concomitant]
     Route: 048
     Dates: end: 20111103
  21. MAGMITT [Concomitant]
     Indication: CONSTIPATION PROPHYLAXIS
     Route: 048
     Dates: end: 20120811
  22. FERROMIA [Concomitant]
     Route: 048
     Dates: start: 20111105, end: 20120811
  23. BAYCARON [Concomitant]
     Route: 048
     Dates: start: 20111111, end: 20120811
  24. OMEPRAL [Concomitant]
     Route: 048
     Dates: start: 20120710, end: 20120811
  25. ALLEGRA [Concomitant]
     Indication: ALLERGY PROPHYLAXIS
     Route: 048
     Dates: end: 20120811

REACTIONS (15)
  - Cellulitis [Recovered/Resolved]
  - Intracardiac thrombus [Not Recovered/Not Resolved]
  - Gastrointestinal haemorrhage [Recovering/Resolving]
  - Compression fracture [Not Recovered/Not Resolved]
  - Cardiac failure [Recovering/Resolving]
  - Aspiration [Fatal]
  - Asphyxia [Fatal]
  - Arterial occlusive disease [Recovered/Resolved]
  - Pruritus [Recovering/Resolving]
  - Faeces discoloured [Recovering/Resolving]
  - Haemoglobin decreased [Recovering/Resolving]
  - Hypoaesthesia [Recovered/Resolved]
  - Peripheral arterial occlusive disease [Recovered/Resolved]
  - Liver disorder [Not Recovered/Not Resolved]
  - Peripheral arterial occlusive disease [Not Recovered/Not Resolved]
